FAERS Safety Report 4334631-4 (Version None)
Quarter: 2004Q1

REPORT INFORMATION
  Report Type: 
  Country: None (occurrence: None)
  Receive Date: 20040329
  Receipt Date: 20031230
  Transmission Date: 20041129
  Serious: No
  Sender: FDA-Public Use
  Company Number: 03P-163-0245948-00

PATIENT
  Age: 54 Year
  Sex: Female
  Weight: 68.0396 kg

DRUGS (9)
  1. HUMIRA [Suspect]
     Indication: RHEUMATOID ARTHRITIS
     Dosage: 40 MG, 1 IN 2 WK, SUBCUTANEOUS
     Route: 058
     Dates: start: 20030729
  2. CELECOXIB [Concomitant]
  3. DYAZIDE [Concomitant]
  4. DOXYCYCLINE [Concomitant]
  5. CALCIUM [Concomitant]
  6. MAGNESIUM [Concomitant]
  7. PYRIDOXINE HYDROCHLORIDE [Concomitant]
  8. MULTI-VITAMINS [Concomitant]
  9. FOSAMAX [Concomitant]

REACTIONS (1)
  - TINNITUS [None]
